APPROVED DRUG PRODUCT: WIGRETTES
Active Ingredient: ERGOTAMINE TARTRATE
Strength: 2MG
Dosage Form/Route: TABLET;SUBLINGUAL
Application: A086750 | Product #001
Applicant: ORGANON USA INC
Approved: Jul 29, 1982 | RLD: No | RS: No | Type: DISCN